FAERS Safety Report 6298608-4 (Version None)
Quarter: 2009Q3

REPORT INFORMATION
  Report Type: 
  Country: None (occurrence: None)
  Receive Date: 20090804
  Receipt Date: 20090721
  Transmission Date: 20100115
  Serious: Yes (Hospitalization)
  Sender: FDA-Public Use
  Company Number: A-NJ2009-26309

PATIENT
  Age: 65 Year
  Sex: Male
  Weight: 67.1 kg

DRUGS (1)
  1. TRACLEER [Suspect]
     Indication: PULMONARY HYPERTENSION
     Dosage: ORAL
     Route: 048
     Dates: start: 20081101, end: 20090701

REACTIONS (1)
  - LIVER ABSCESS [None]
